FAERS Safety Report 9129743 (Version 2)
Quarter: 2013Q1

REPORT INFORMATION
  Report Type: Spontaneous
  Country: BE (occurrence: BE)
  Receive Date: 20130228
  Receipt Date: 20130325
  Transmission Date: 20140127
  Serious: Yes (Life-Threatening, Disabling)
  Sender: FDA-Public Use
  Company Number: BE-B.I. PHARMACEUTICALS,INC./RIDGEFIELD-2013-BL-00101BL

PATIENT
  Age: 84 Year
  Sex: Female
  Weight: 90 kg

DRUGS (11)
  1. PRADAXA [Suspect]
     Indication: ATRIAL FIBRILLATION
     Dosage: 220 MG
     Route: 048
     Dates: start: 20120910, end: 20130210
  2. BISOPROLOL [Concomitant]
     Indication: ATRIAL FIBRILLATION
     Dosage: 5 MG
     Route: 048
     Dates: start: 20120910, end: 20130210
  3. CORDARONE [Concomitant]
     Indication: ATRIAL FIBRILLATION
     Dosage: 200 MG
     Route: 048
     Dates: start: 20120910, end: 20130210
  4. ALDACTONE [Concomitant]
     Indication: CARDIAC FAILURE CONGESTIVE
     Dosage: 25 MG
     Route: 048
     Dates: start: 20120910, end: 20130210
  5. COVERSYL [Concomitant]
     Indication: CARDIAC FAILURE CONGESTIVE
     Dosage: 5 MG
     Route: 048
     Dates: start: 20120910, end: 20130210
  6. BURINEX [Concomitant]
     Indication: CARDIAC FAILURE CONGESTIVE
     Dosage: 1 MG
     Route: 048
     Dates: start: 20120910, end: 20130210
  7. GLURENORM [Concomitant]
  8. AMLOR [Concomitant]
  9. PANTOMED [Concomitant]
  10. EMCONCOR [Concomitant]
  11. LYSANXIA [Concomitant]

REACTIONS (4)
  - Shock [Recovered/Resolved]
  - Melaena [Recovered/Resolved]
  - Bradycardia [Recovered/Resolved]
  - Renal failure acute [Recovered/Resolved]
